FAERS Safety Report 21689631 (Version 2)
Quarter: 2022Q4

REPORT INFORMATION
  Report Type: Spontaneous
  Country: US (occurrence: US)
  Receive Date: 20221206
  Receipt Date: 20221226
  Transmission Date: 20230112
  Serious: No
  Sender: FDA-Public Use
  Company Number: US-BAYER-2022P026443

PATIENT
  Age: 26 Year
  Sex: Male

DRUGS (1)
  1. KOVALTRY [Suspect]
     Active Substance: ANTIHEMOPHILIC FACTOR, HUMAN RECOMBINANT
     Dosage: 2800 - 3000 UNITS , QOD OR PRN BLEEDS
     Route: 042

REACTIONS (1)
  - Palpitations [None]

NARRATIVE: CASE EVENT DATE: 20221122
